FAERS Safety Report 19257346 (Version 1)
Quarter: 2021Q2

REPORT INFORMATION
  Report Type: Spontaneous
  Country: EG (occurrence: EG)
  Receive Date: 20210514
  Receipt Date: 20210514
  Transmission Date: 20210717
  Serious: Yes (Other)
  Sender: FDA-Public Use
  Company Number: EG-MACLEODS PHARMACEUTICALS US LTD-MAC2021030255

PATIENT

DRUGS (1)
  1. TRIAMCINOLONE ACETONIDE. [Suspect]
     Active Substance: TRIAMCINOLONE ACETONIDE
     Indication: ALOPECIA AREATA
     Dosage: 1 DOSAGE FORM, TOTAL, INJECTIN, 40MG/ML
     Route: 065

REACTIONS (6)
  - Leukoderma [Recovered/Resolved]
  - Skin hypopigmentation [Recovered/Resolved]
  - Skin atrophy [Recovered/Resolved]
  - Erythema [Recovered/Resolved]
  - Alopecia [Recovered/Resolved]
  - Telangiectasia [Recovered/Resolved]
